FAERS Safety Report 14360664 (Version 4)
Quarter: 2019Q1

REPORT INFORMATION
  Report Type: Spontaneous
  Country: NL (occurrence: NL)
  Receive Date: 20180106
  Receipt Date: 20190117
  Transmission Date: 20190417
  Serious: Yes (Hospitalization, Other)
  Sender: FDA-Public Use
  Company Number: NL-MYLANLABS-2018M1000962

PATIENT
  Age: 72 Year
  Sex: Female

DRUGS (9)
  1. ACETYLSALICYLZUUR ACTAVIS [Concomitant]
     Indication: PRODUCT USED FOR UNKNOWN INDICATION
     Dosage: 80 MG, QD (1DD1 )
     Route: 048
     Dates: start: 20170912
  2. TERBINAFINE. [Suspect]
     Active Substance: TERBINAFINE
     Indication: FUNGAL SKIN INFECTION
     Dosage: 250 MG, QD (1X PER DAG 1 STUK )
     Route: 048
     Dates: start: 20171031, end: 20171124
  3. GLUCAGON HYPOKIT [Concomitant]
     Indication: PRODUCT USED FOR UNKNOWN INDICATION
     Dosage: ZN
     Dates: start: 20160719
  4. THYRAX                             /00068001/ [Concomitant]
     Active Substance: LEVOTHYROXINE
     Indication: PRODUCT USED FOR UNKNOWN INDICATION
     Dosage: 75 MICROGRAM, QD (1DD3 )
     Route: 048
     Dates: start: 20170912
  5. MACROGOL [Concomitant]
     Active Substance: POLYETHYLENE GLYCOLS
     Indication: PRODUCT USED FOR UNKNOWN INDICATION
     Dosage: 1 DF, QD (1DD1 )
     Route: 048
  6. LANTUS [Concomitant]
     Active Substance: INSULIN GLARGINE
     Indication: PRODUCT USED FOR UNKNOWN INDICATION
     Dosage: 26 IU, QD (1DD 26 IE)
     Route: 058
     Dates: start: 20170804
  7. PRAVASTATINE [Concomitant]
     Active Substance: PRAVASTATIN
     Indication: PRODUCT USED FOR UNKNOWN INDICATION
     Dosage: 40 MG, QD
     Dates: start: 20170912
  8. NOVORAPID [Concomitant]
     Active Substance: INSULIN ASPART
     Indication: PRODUCT USED FOR UNKNOWN INDICATION
     Dosage: 10 INTERNATIONAL UNIT, Q8H (3DD10 IE)
     Dates: start: 20170713
  9. PANTOPRAZOL +PHARMA [Concomitant]
     Indication: PRODUCT USED FOR UNKNOWN INDICATION
     Dosage: 40 MG, QD (1DD1 )
     Route: 048
     Dates: start: 20170912

REACTIONS (2)
  - Toxic skin eruption [Recovering/Resolving]
  - Acute generalised exanthematous pustulosis [Recovering/Resolving]

NARRATIVE: CASE EVENT DATE: 20171119
